FAERS Safety Report 24302567 (Version 1)
Quarter: 2024Q3

REPORT INFORMATION
  Report Type: Spontaneous
  Country: US (occurrence: US)
  Receive Date: 20240910
  Receipt Date: 20240910
  Transmission Date: 20241016
  Serious: No
  Sender: NIPPON SHINYAKU
  Company Number: US-NIPPON SHINYAKU-NIP-2023-000058

PATIENT
  Age: 2 Year
  Sex: Male

DRUGS (3)
  1. VILTEPSO [Suspect]
     Active Substance: VILTOLARSEN
     Indication: Duchenne muscular dystrophy
     Dosage: UNK
     Route: 041
  2. VILTEPSO [Suspect]
     Active Substance: VILTOLARSEN
     Dosage: 850 MG, QWK
     Route: 041
     Dates: start: 20230921
  3. VILTEPSO [Suspect]
     Active Substance: VILTOLARSEN
     Dosage: 1000 MG, QWK
     Route: 041

REACTIONS (1)
  - Incorrect dose administered [Unknown]

NARRATIVE: CASE EVENT DATE: 20230921
